FAERS Safety Report 8531780-1 (Version None)
Quarter: 2012Q3

REPORT INFORMATION
  Report Type: 
  Country: None (occurrence: None)
  Receive Date: 20120711
  Receipt Date: 20120625
  Transmission Date: 20120928
  Serious: Yes (Other)
  Sender: FDA-Public Use
  Company Number: 2012-002434

PATIENT
  Age: 94 Year
  Sex: Female

DRUGS (4)
  1. LUMIGAN [Concomitant]
  2. ECHINACEA (ECHINACEA PURPUREA) [Concomitant]
  3. ENABLEX [Suspect]
     Indication: INSOMNIA
     Dosage: 7.5 MG BEFORE BEDTIME, ORAL
     Route: 048
  4. ISOPTIN [Concomitant]

REACTIONS (14)
  - DEMENTIA [None]
  - AMNESIA [None]
  - PRURITUS [None]
  - RESTLESSNESS [None]
  - DRUG INEFFECTIVE [None]
  - DELIRIUM [None]
  - EYE COLOUR CHANGE [None]
  - COUGH [None]
  - URINARY TRACT INFECTION [None]
  - SNEEZING [None]
  - AGITATION [None]
  - GLAUCOMA [None]
  - STARING [None]
  - DRY MOUTH [None]
